FAERS Safety Report 7589017-6 (Version None)
Quarter: 2011Q3

REPORT INFORMATION
  Report Type: 
  Country: None (occurrence: None)
  Receive Date: 20110705
  Receipt Date: 20110615
  Transmission Date: 20111222
  Serious: Yes (Other)
  Sender: FDA-Public Use
  Company Number: US-BAYER-201032279NA

PATIENT
  Age: 49 Year
  Sex: Female
  Weight: 83.9 kg

DRUGS (11)
  1. YASMIN [Suspect]
     Indication: PREMENSTRUAL SYNDROME
     Dosage: UNK
     Dates: start: 20040513, end: 20060925
  2. YASMIN [Suspect]
     Indication: MENSTRUAL CYCLE MANAGEMENT
  3. PHENERGAN HCL [Concomitant]
  4. BENTYL [Concomitant]
  5. YAZ [Suspect]
     Indication: MENORRHAGIA
  6. YASMIN [Suspect]
     Indication: MENORRHAGIA
  7. YAZ [Suspect]
     Indication: MENSTRUATION IRREGULAR
  8. YAZ [Suspect]
     Indication: PREMENSTRUAL SYNDROME
     Dosage: UNK
     Dates: start: 20070115, end: 20091128
  9. OMEPRAZOLE [Concomitant]
  10. YAZ [Suspect]
     Indication: MENSTRUAL CYCLE MANAGEMENT
  11. DROSPIRENONE AND ETHINYL ESTRADIOL [Suspect]
     Dosage: UNK
     Dates: start: 20030101, end: 20091128

REACTIONS (8)
  - INJURY [None]
  - PAIN [None]
  - BILIARY COLIC [None]
  - CHOLELITHIASIS [None]
  - CHOLECYSTITIS CHRONIC [None]
  - GALLBLADDER CHOLESTEROLOSIS [None]
  - PSYCHIATRIC SYMPTOM [None]
  - EMOTIONAL DISORDER [None]
